FAERS Safety Report 6682757-2 (Version None)
Quarter: 2010Q2

REPORT INFORMATION
  Report Type: 
  Country: None (occurrence: None)
  Receive Date: 20100415
  Receipt Date: 20100407
  Transmission Date: 20101027
  Serious: Yes (Death, Other)
  Sender: FDA-Public Use
  Company Number: JP-ROCHE-691686

PATIENT
  Sex: Male
  Weight: 69 kg

DRUGS (9)
  1. AVASTIN [Suspect]
     Indication: COLON CANCER
     Route: 041
     Dates: start: 20080122, end: 20080910
  2. FLUOROURACIL [Concomitant]
     Dosage: NOTE: DOSAGE IS UNCERTAIN.
     Route: 040
     Dates: start: 20071024, end: 20080111
  3. FLUOROURACIL [Concomitant]
     Dosage: NOTE: DOSAGE IS UNCERTAIN.
     Route: 041
     Dates: start: 20071024, end: 20080101
  4. FLUOROURACIL [Concomitant]
     Route: 041
     Dates: start: 20080122, end: 20080701
  5. IRINOTECAN HYDROCHLORIDE [Concomitant]
     Dosage: NOTE: DOSAGE IS UNCERTAIN.
     Route: 041
     Dates: start: 20071024, end: 20080111
  6. IRINOTECAN HYDROCHLORIDE [Concomitant]
     Route: 041
     Dates: start: 20080122, end: 20080724
  7. LEUCOVORIN CALCIUM [Concomitant]
     Dosage: NOTE: DOSAGE IS UNCERTAIN.
     Route: 041
     Dates: start: 20071024, end: 20080111
  8. LEUCOVORIN CALCIUM [Concomitant]
     Route: 041
     Dates: start: 20080122, end: 20080724
  9. OXALIPLATIN [Concomitant]
     Route: 041
     Dates: start: 20080806, end: 20080910

REACTIONS (2)
  - DISEASE PROGRESSION [None]
  - VENOUS THROMBOSIS [None]
